FAERS Safety Report 19579206 (Version 1)
Quarter: 2021Q3

REPORT INFORMATION
  Report Type: Report from Study
  Country: US (occurrence: US)
  Receive Date: 20210719
  Receipt Date: 20210719
  Transmission Date: 20211014
  Serious: Yes (Hospitalization, Other)
  Sender: FDA-Public Use
  Company Number: US-BRISTOL-MYERS SQUIBB COMPANY-BMS-2021-069871

PATIENT
  Age: 85 Year
  Sex: Male
  Weight: 81.65 kg

DRUGS (6)
  1. APIXABAN [Suspect]
     Active Substance: APIXABAN
     Dosage: 2.5 MILLIGRAM, BID
     Route: 065
  2. COVID?19 VACCINE MRNA [Concomitant]
     Indication: COVID-19 IMMUNISATION
     Dosage: UNK
     Route: 030
     Dates: start: 202012, end: 202012
  3. LUPRON [Suspect]
     Active Substance: LEUPROLIDE ACETATE
     Dosage: 45 MILLIGRAM, Q4MO
     Route: 030
     Dates: start: 2018
  4. LUPRON [Suspect]
     Active Substance: LEUPROLIDE ACETATE
     Indication: PROSTATE CANCER
     Dosage: UNK
     Route: 030
  5. COVID?19 VACCINE MRNA [Concomitant]
     Dosage: UNK
     Route: 030
     Dates: start: 202101, end: 202101
  6. APIXABAN [Suspect]
     Active Substance: APIXABAN
     Indication: AORTIC VALVE DISEASE
     Dosage: 5 MILLIGRAM, BID
     Route: 065

REACTIONS (4)
  - Aortic valve disease [Recovered/Resolved]
  - Fall [Recovered/Resolved]
  - Arrhythmia [Recovered/Resolved]
  - Malaise [Recovered/Resolved]

NARRATIVE: CASE EVENT DATE: 20210426
